FAERS Safety Report 4741417-5 (Version None)
Quarter: 2005Q3

REPORT INFORMATION
  Report Type: 
  Country: None (occurrence: None)
  Receive Date: 20050808
  Receipt Date: 20050727
  Transmission Date: 20060218
  Serious: Yes (Hospitalization, Other)
  Sender: FDA-Public Use
  Company Number: USA030228354

PATIENT
  Age: 60 Year
  Sex: Female
  Weight: 53 kg

DRUGS (7)
  1. HUMALOG [Suspect]
     Indication: DIABETES MELLITUS
     Dosage: 13 U
     Dates: start: 20010101
  2. ULTRA-LENTE ILETIN INSULIN [Suspect]
     Indication: DIABETES MELLITUS
  3. NOVOLIN (INSULIN HUMAN INJECTION, ISOPHANE) [Concomitant]
  4. NOVOLOG [Concomitant]
  5. HUMULIN U [Suspect]
     Indication: DIABETES MELLITUS
     Dosage: 11 U/1 DAY
     Dates: start: 20031026
  6. HUMULIN L [Suspect]
     Indication: DIABETES MELLITUS
     Dates: start: 20050101
  7. HUMULIN N [Suspect]

REACTIONS (16)
  - ARTHRALGIA [None]
  - BLINDNESS UNILATERAL [None]
  - BLOOD GLUCOSE DECREASED [None]
  - BLOOD GLUCOSE INCREASED [None]
  - DEVICE FAILURE [None]
  - DIZZINESS [None]
  - EYE HAEMORRHAGE [None]
  - GASTRIC DISORDER [None]
  - HYPERKERATOSIS [None]
  - MALAISE [None]
  - NAUSEA [None]
  - PAIN IN EXTREMITY [None]
  - VASCULAR RUPTURE [None]
  - VISUAL ACUITY REDUCED [None]
  - VOMITING [None]
  - WEIGHT DECREASED [None]
